FAERS Safety Report 7343107-1 (Version None)
Quarter: 2011Q1

REPORT INFORMATION
  Report Type: 
  Country: None (occurrence: None)
  Receive Date: 20110310
  Receipt Date: 20110225
  Transmission Date: 20110831
  Serious: Yes (Death, Hospitalization, Other)
  Sender: FDA-Public Use
  Company Number: GB-ELI_LILLY_AND_COMPANY-GB201101005727

PATIENT
  Age: 61 Year
  Sex: Female

DRUGS (6)
  1. DOCETAXEL [Concomitant]
     Indication: ANGIOSARCOMA
     Dosage: UNK, UNKNOWN, EACH CYCLE
     Route: 065
  2. HYDROCORTISONE [Concomitant]
     Indication: CHEMOTHERAPY
  3. IFOSFAMIDE [Concomitant]
     Indication: CHEMOTHERAPY
  4. CISPLATIN [Concomitant]
     Indication: CHEMOTHERAPY
  5. GEMCITABINE HYDROCHLORIDE [Suspect]
     Indication: ANGIOSARCOMA
     Dosage: UNK, UNKNOWN, EACH CYCLE
     Route: 065
  6. DOXORUBICIN [Concomitant]
     Indication: CHEMOTHERAPY

REACTIONS (5)
  - ULCER [None]
  - PAIN [None]
  - HAEMORRHAGE [None]
  - DISEASE PROGRESSION [None]
  - THROMBOCYTOPENIA [None]
